FAERS Safety Report 11108694 (Version 1)
Quarter: 2015Q2

REPORT INFORMATION
  Report Type: Spontaneous
  Country: US (occurrence: None)
  Receive Date: 20150511
  Receipt Date: 20150511
  Transmission Date: 20150821
  Serious: No
  Sender: FDA-Public Use
  Company Number: None

PATIENT
  Age: 71 Year
  Sex: Male

DRUGS (11)
  1. LOVENOX [Suspect]
     Active Substance: ENOXAPARIN SODIUM
  2. CARDED LOL [Concomitant]
  3. SIMVASTATIN. [Concomitant]
     Active Substance: SIMVASTATIN
  4. ASCAL [Concomitant]
     Active Substance: CARBASALATE
  5. ISOTORBIDE [Concomitant]
  6. LISINOPRIL. [Concomitant]
     Active Substance: LISINOPRIL
  7. GLIMEPIRIDE. [Concomitant]
     Active Substance: GLIMEPIRIDE
  8. MELCAPTOPURINE [Concomitant]
  9. WARFARIN [Concomitant]
     Active Substance: WARFARIN
  10. ASPIRIN. [Concomitant]
     Active Substance: ASPIRIN
  11. ALIVE [Concomitant]

REACTIONS (5)
  - Product substitution issue [None]
  - Device malfunction [None]
  - Incorrect dose administered [None]
  - Injection site pain [None]
  - Product quality issue [None]
